FAERS Safety Report 18393163 (Version 2)
Quarter: 2020Q4

REPORT INFORMATION
  Report Type: Report from Study
  Country: US (occurrence: US)
  Receive Date: 20201016
  Receipt Date: 20201119
  Transmission Date: 20210114
  Serious: No
  Sender: FDA-Public Use
  Company Number: US-IPSEN BIOPHARMACEUTICALS, INC.-2018-19220

PATIENT
  Age: 3 Year
  Sex: Male
  Weight: 14.5 kg

DRUGS (11)
  1. DYSPORT [Suspect]
     Active Substance: ABOBOTULINUMTOXINA
     Indication: OFF LABEL USE
  2. DYSPORT [Suspect]
     Active Substance: ABOBOTULINUMTOXINA
     Indication: MUSCLE SPASTICITY
  3. RUFINAMIDE [Concomitant]
     Active Substance: RUFINAMIDE
     Indication: LENNOX-GASTAUT SYNDROME
     Dosage: 320 MG TID
     Dates: start: 20180125, end: 202009
  4. CLOBAZAM. [Concomitant]
     Active Substance: CLOBAZAM
     Indication: MUSCLE SPASTICITY
     Dosage: 5 MG BID
     Dates: start: 20180607, end: 202001
  5. CETIRIZINE [Concomitant]
     Active Substance: CETIRIZINE HYDROCHLORIDE
     Indication: SEASONAL ALLERGY
     Dates: start: 20170626, end: 20180706
  6. DYSPORT [Suspect]
     Active Substance: ABOBOTULINUMTOXINA
     Indication: MUSCLE SPASTICITY
     Dosage: 400 UNITS (INJECTED AT TWO POINTS ON THE LEFT AND RIGHT SIDE IN ADDUCTOR MAGNUS AND HAMSTRING)
     Route: 030
     Dates: start: 20180307, end: 20180307
  7. DANTROLENE. [Concomitant]
     Active Substance: DANTROLENE SODIUM
     Dosage: 5 MG BID
     Dates: start: 20180607, end: 202001
  8. DIAZEPAM. [Concomitant]
     Active Substance: DIAZEPAM
     Indication: MUSCLE SPASTICITY
     Dosage: 1 MG TID
     Dates: start: 20171211, end: 20180415
  9. DIAZEPAM. [Concomitant]
     Active Substance: DIAZEPAM
     Dosage: 2 MG TID
     Dates: start: 20180416, end: 202001
  10. DIASTAT ACUDIAL [Concomitant]
     Active Substance: DIAZEPAM
     Indication: LENNOX-GASTAUT SYNDROME
     Route: 054
     Dates: start: 20160505, end: 202009
  11. DANTROLENE. [Concomitant]
     Active Substance: DANTROLENE SODIUM
     Indication: MUSCLE SPASTICITY
     Dosage: 10 MG TID
     Dates: start: 20180416, end: 20180606

REACTIONS (2)
  - Strabismus [Recovered/Resolved]
  - Off label use [Unknown]

NARRATIVE: CASE EVENT DATE: 20180307
